FAERS Safety Report 22585076 (Version 1)
Quarter: 2023Q2

REPORT INFORMATION
  Report Type: Spontaneous
  Country: US (occurrence: None)
  Receive Date: 20230609
  Receipt Date: 20230609
  Transmission Date: 20230721
  Serious: No
  Sender: FDA-Public Use
  Company Number: 2023A131062

PATIENT

DRUGS (1)
  1. BRILINTA [Suspect]
     Active Substance: TICAGRELOR
     Route: 048

REACTIONS (5)
  - Hyperhidrosis [Unknown]
  - Anxiety [Unknown]
  - Nasopharyngitis [Unknown]
  - Dizziness [Unknown]
  - Lower respiratory tract infection [Unknown]
